FAERS Safety Report 6982721-X (Version None)
Quarter: 2010Q3

REPORT INFORMATION
  Report Type: 
  Country: None (occurrence: None)
  Receive Date: 20100914
  Receipt Date: 20100315
  Transmission Date: 20110219
  Serious: No
  Sender: FDA-Public Use
  Company Number: US-PFIZER INC-2010033649

PATIENT
  Sex: Female
  Weight: 92.971 kg

DRUGS (6)
  1. LYRICA [Suspect]
     Indication: FIBROMYALGIA
     Dosage: 200 MG, 2X/DAY
     Dates: start: 20091201
  2. PRISTIQ [Concomitant]
     Indication: DEPRESSION
     Dosage: 100 MG, UNK
  3. PRISTIQ [Concomitant]
     Indication: ANXIETY
  4. TRAZODONE [Concomitant]
     Indication: DEPRESSION
     Dosage: 150 MG, AT NIGHT
  5. TRAZODONE [Concomitant]
     Indication: ANXIETY
  6. KLONOPIN [Concomitant]
     Indication: ANXIETY
     Dosage: 0.5 MG, 2X/DAY

REACTIONS (1)
  - ANORGASMIA [None]
